FAERS Safety Report 17316493 (Version 1)
Quarter: 2020Q1

REPORT INFORMATION
  Report Type: Spontaneous
  Country: US (occurrence: US)
  Receive Date: 20200124
  Receipt Date: 20200124
  Transmission Date: 20200409
  Serious: No
  Sender: FDA-Public Use
  Company Number: US-ASTRAZENECA-2019SF91776

PATIENT
  Sex: Male

DRUGS (2)
  1. LOKELMA [Suspect]
     Active Substance: SODIUM ZIRCONIUM CYCLOSILICATE
     Indication: BLOOD POTASSIUM INCREASED
     Dosage: 10.0G UNKNOWN
     Route: 048
     Dates: start: 20191221
  2. LOKELMA [Suspect]
     Active Substance: SODIUM ZIRCONIUM CYCLOSILICATE
     Indication: BLOOD POTASSIUM INCREASED
     Dosage: 10.0G UNKNOWN
     Route: 048
     Dates: start: 20191222

REACTIONS (1)
  - Computerised tomogram abnormal [Not Recovered/Not Resolved]

NARRATIVE: CASE EVENT DATE: 20191225
